FAERS Safety Report 25303738 (Version 1)
Quarter: 2025Q2

REPORT INFORMATION
  Report Type: Spontaneous
  Country: FR (occurrence: FR)
  Receive Date: 20250513
  Receipt Date: 20250513
  Transmission Date: 20250716
  Serious: Yes (Other)
  Sender: GLAXOSMITHKLINE
  Company Number: FR-GSK-FR2025GSK057321

PATIENT

DRUGS (12)
  1. ATARAX [Suspect]
     Active Substance: HYDROXYZINE HYDROCHLORIDE
     Indication: Urticaria
     Dosage: 25 MG, 1D
  2. ALBUTEROL SULFATE [Suspect]
     Active Substance: ALBUTEROL SULFATE
     Indication: Product used for unknown indication
  3. CEFUROXIME [Suspect]
     Active Substance: CEFUROXIME
     Indication: Product used for unknown indication
  4. HERBALS\PHENOBARBITAL [Suspect]
     Active Substance: HERBALS\PHENOBARBITAL
     Indication: Product used for unknown indication
  5. RITODRINE HYDROCHLORIDE [Suspect]
     Active Substance: RITODRINE HYDROCHLORIDE
     Indication: Product used for unknown indication
  6. BACITRACIN\LIPROTAMASE AMYLASE [Suspect]
     Active Substance: BACITRACIN\LIPROTAMASE AMYLASE
     Indication: Oropharyngeal pain
  7. POLARAMINE [Suspect]
     Active Substance: DEXCHLORPHENIRAMINE MALEATE
     Indication: Urticaria
     Dosage: 2 MG, 1D
  8. SYNTOCINON [Suspect]
     Active Substance: OXYTOCIN
     Indication: Product used for unknown indication
  9. PROPACETAMOL HYDROCHLORIDE [Suspect]
     Active Substance: PROPACETAMOL HYDROCHLORIDE
     Indication: Product used for unknown indication
  10. KETOPROFEN [Suspect]
     Active Substance: KETOPROFEN
     Indication: Product used for unknown indication
  11. DALTEPARIN SODIUM [Suspect]
     Active Substance: DALTEPARIN SODIUM
     Indication: Product used for unknown indication
  12. PARLODEL [Suspect]
     Active Substance: BROMOCRIPTINE MESYLATE
     Indication: Product used for unknown indication

REACTIONS (6)
  - Dermatitis exfoliative generalised [Recovered/Resolved]
  - Drug hypersensitivity [Recovered/Resolved]
  - Rash morbilliform [Recovered/Resolved]
  - Pyrexia [Unknown]
  - Lymphadenopathy [Unknown]
  - Exposure during pregnancy [Unknown]
